FAERS Safety Report 23051468 (Version 18)
Quarter: 2024Q2

REPORT INFORMATION
  Report Type: Spontaneous
  Country: US (occurrence: US)
  Receive Date: 20231010
  Receipt Date: 20240619
  Transmission Date: 20240716
  Serious: No
  Sender: FDA-Public Use
  Company Number: US-DAIICHI SANKYO, INC.-DSU-2023-141651AA

PATIENT
  Sex: Female

DRUGS (6)
  1. ENHERTU [Suspect]
     Active Substance: FAM-TRASTUZUMAB DERUXTECAN-NXKI
     Indication: Breast cancer metastatic
     Dosage: UNK
     Route: 065
     Dates: start: 202310, end: 202310
  2. ENHERTU [Suspect]
     Active Substance: FAM-TRASTUZUMAB DERUXTECAN-NXKI
     Dosage: UNK
     Route: 065
  3. ENHERTU [Suspect]
     Active Substance: FAM-TRASTUZUMAB DERUXTECAN-NXKI
     Dosage: UNK
     Route: 065
  4. ENHERTU [Suspect]
     Active Substance: FAM-TRASTUZUMAB DERUXTECAN-NXKI
     Dosage: UNK
     Route: 065
     Dates: start: 202403, end: 202403
  5. ENHERTU [Suspect]
     Active Substance: FAM-TRASTUZUMAB DERUXTECAN-NXKI
     Dosage: UNK
     Route: 065
  6. ENHERTU [Suspect]
     Active Substance: FAM-TRASTUZUMAB DERUXTECAN-NXKI
     Dosage: UNK
     Route: 065
     Dates: start: 20240613, end: 20240613

REACTIONS (26)
  - Feeling abnormal [Unknown]
  - Feeling abnormal [Unknown]
  - Disturbance in attention [Unknown]
  - Illness [Unknown]
  - Anxiety [Unknown]
  - Lymphadenopathy [Unknown]
  - Flatulence [Unknown]
  - Dyspepsia [Unknown]
  - Alopecia [Recovering/Resolving]
  - Alopecia [Unknown]
  - Nasopharyngitis [Unknown]
  - Flatulence [Unknown]
  - Liver function test increased [Unknown]
  - Headache [Unknown]
  - Dehydration [Unknown]
  - Diarrhoea [Unknown]
  - Fatigue [Unknown]
  - Nausea [Unknown]
  - Gastrointestinal disorder [Unknown]
  - Hunger [Unknown]
  - Somnolence [Unknown]
  - Illness [Unknown]
  - Hair growth abnormal [Unknown]
  - Hair colour changes [Unknown]
  - Madarosis [Unknown]
  - Erythema [Unknown]

NARRATIVE: CASE EVENT DATE: 20240613
